FAERS Safety Report 9452475 (Version 1)
Quarter: 2013Q3

REPORT INFORMATION
  Report Type: Spontaneous
  Country: US (occurrence: US)
  Receive Date: 20130812
  Receipt Date: 20130812
  Transmission Date: 20140515
  Serious: Yes (Other)
  Sender: FDA-Public Use
  Company Number: US-009507513-1207USA012301

PATIENT
  Sex: Male
  Weight: 82.54 kg

DRUGS (6)
  1. DULERA [Suspect]
     Indication: ASTHMA
     Dosage: 100/5, 2 DF, BID
     Route: 055
     Dates: start: 20120607, end: 20120608
  2. SYMBICORT [Suspect]
     Indication: ASTHMA
     Dosage: 160/4.5, 2 DF, BID
     Route: 055
     Dates: start: 20120601, end: 20120603
  3. NEXIUM [Concomitant]
  4. AMLODIPINE BESYLATE (+) BENAZEPRIL HYDROCHLORIDE [Concomitant]
     Dosage: 5/20
  5. BUPROPION HYDROCHLORIDE [Concomitant]
  6. SINGULAIR [Concomitant]

REACTIONS (4)
  - Chest discomfort [Recovered/Resolved]
  - Oedema peripheral [Recovered/Resolved]
  - Pain in extremity [Recovered/Resolved]
  - Swollen tongue [Recovered/Resolved]
